FAERS Safety Report 6924975-1 (Version None)
Quarter: 2010Q3

REPORT INFORMATION
  Report Type: 
  Country: None (occurrence: None)
  Receive Date: 20100811
  Receipt Date: 20100727
  Transmission Date: 20110219
  Serious: Yes (Death, Life-Threatening, Hospitalization, Other)
  Sender: FDA-Public Use
  Company Number: 2009003065

PATIENT
  Age: 79 Year
  Sex: Male

DRUGS (18)
  1. ERLOTINIB (ERLOTINIB) (TABLET) (ERLOTINIB) [Suspect]
     Indication: HEPATIC NEOPLASM MALIGNANT
     Dosage: 150 MG, QD, ORAL, 100 MG, QD, ORAL
     Route: 048
     Dates: start: 20091001, end: 20091003
  2. ERLOTINIB (ERLOTINIB) (TABLET) (ERLOTINIB) [Suspect]
     Indication: HEPATIC NEOPLASM MALIGNANT
     Dosage: 150 MG, QD, ORAL, 100 MG, QD, ORAL
     Route: 048
     Dates: start: 20091007, end: 20091015
  3. SORAFENIB [Suspect]
     Indication: HEPATIC NEOPLASM MALIGNANT
     Dosage: 800 MG, QD, ORAL
     Route: 048
     Dates: start: 20091001, end: 20091003
  4. SORAFENIB [Suspect]
     Indication: HEPATIC NEOPLASM MALIGNANT
     Dosage: 800 MG, QD, ORAL
     Route: 048
     Dates: start: 20091006, end: 20091015
  5. ISOSORBIDE DINITRATE [Concomitant]
  6. ASPIRIN [Concomitant]
  7. AMLODIPINE [Concomitant]
  8. FERROUS FUMARATE [Concomitant]
  9. ALBUTEROL SULFATE AUTOHALER [Concomitant]
  10. ATROVENT [Concomitant]
  11. BECLOMETHASONE DIPROPIONATE [Concomitant]
  12. ALDACTONE [Concomitant]
  13. LASIX [Concomitant]
  14. GAMAT JELLY [Concomitant]
  15. RANITIDINE [Concomitant]
  16. FAMOTIDINE [Concomitant]
  17. SIMVASTATIN [Concomitant]
  18. MYLANTA [Concomitant]

REACTIONS (15)
  - ABDOMINAL PAIN [None]
  - ACUTE MYOCARDIAL INFARCTION [None]
  - ANAEMIA [None]
  - ASPARTATE AMINOTRANSFERASE INCREASED [None]
  - BLOOD BILIRUBIN INCREASED [None]
  - CARDIAC FAILURE CONGESTIVE [None]
  - CONDITION AGGRAVATED [None]
  - CONSTIPATION [None]
  - DECREASED APPETITE [None]
  - DIARRHOEA [None]
  - HYPOTENSION [None]
  - LETHARGY [None]
  - PNEUMONIA [None]
  - VOMITING [None]
  - WHEEZING [None]
